FAERS Safety Report 7288202-0 (Version None)
Quarter: 2011Q1

REPORT INFORMATION
  Report Type: 
  Country: None (occurrence: None)
  Receive Date: 20110207
  Receipt Date: 20110207
  Transmission Date: 20110831
  Serious: Yes (Hospitalization)
  Sender: FDA-Public Use
  Company Number: None

PATIENT
  Age: 48 Year
  Sex: Female
  Weight: 79.5156 kg

DRUGS (1)
  1. GANETSPIB [Suspect]
     Indication: PANCREATIC CARCINOMA
     Dosage: 200MG/M2 WKLY X 3 WKS
     Dates: start: 20110107, end: 20110114

REACTIONS (1)
  - ABDOMINAL PAIN [None]
